FAERS Safety Report 9038546 (Version 3)
Quarter: 2013Q1

REPORT INFORMATION
  Report Type: Spontaneous
  Country: US (occurrence: US)
  Receive Date: 20130129
  Receipt Date: 20130326
  Transmission Date: 20140127
  Serious: Yes (Hospitalization)
  Sender: FDA-Public Use
  Company Number: US-B.I. PHARMACEUTICALS,INC./RIDGEFIELD-2013-BI-01838BP

PATIENT
  Age: 69 None
  Sex: Female
  Weight: 62 kg

DRUGS (4)
  1. SPIRIVA [Suspect]
     Indication: BRONCHITIS CHRONIC
     Dosage: 18 MCG
     Route: 055
     Dates: start: 2003
  2. MUCINEX [Concomitant]
     Dosage: 1200 MG
     Route: 048
  3. SINGULAIR [Concomitant]
     Dosage: 10 MG
     Route: 048
  4. TESSALON PERLES [Concomitant]
     Dosage: 100 MG
     Route: 048

REACTIONS (7)
  - Bronchitis [Not Recovered/Not Resolved]
  - Pneumonia [Recovered/Resolved]
  - Oral fungal infection [Recovered/Resolved]
  - Vocal cord thickening [Recovered/Resolved]
  - Dyspnoea [Unknown]
  - Product quality issue [Recovered/Resolved]
  - Product quality issue [Recovered/Resolved]
